FAERS Safety Report 4616059-2 (Version None)
Quarter: 2005Q1

REPORT INFORMATION
  Report Type: 
  Country: None (occurrence: None)
  Receive Date: 20050321
  Receipt Date: 20050311
  Transmission Date: 20050727
  Serious: Yes (Death, Life-Threatening, Hospitalization)
  Sender: FDA-Public Use
  Company Number: STA-AE-05-MTX-003

PATIENT
  Age: 66 Year
  Sex: Female

DRUGS (10)
  1. METHOTREXATE [Suspect]
     Indication: RHEUMATOID ARTHRITIS
     Dosage: 4 MG 1XW ORAL
     Route: 048
     Dates: start: 20000405, end: 20001205
  2. METHOTREXATE [Suspect]
     Indication: RHEUMATOID ARTHRITIS
     Dosage: 6 MG 1XW ORAL
     Route: 048
     Dates: start: 20001206, end: 20040520
  3. INFLIXIMAB [Suspect]
     Indication: RHEUMATOID ARTHRITIS
     Dosage: IV
     Route: 042
     Dates: start: 20040214, end: 20040214
  4. INFLIXIMAB [Suspect]
     Indication: RHEUMATOID ARTHRITIS
     Dosage: IV
     Route: 042
     Dates: start: 20040228, end: 20040228
  5. INFLIXIMAB [Suspect]
     Indication: RHEUMATOID ARTHRITIS
     Dosage: IV
     Route: 042
     Dates: start: 20040327, end: 20040327
  6. PREDNISOLONE [Concomitant]
  7. SULINDAC [Concomitant]
  8. TEPRENONE [Concomitant]
  9. DOXAZOSINE MESILATE [Concomitant]
  10. NILVADIPINE [Concomitant]

REACTIONS (11)
  - ANOREXIA [None]
  - CARDIAC FAILURE [None]
  - DYSPNOEA [None]
  - LYMPHOMA [None]
  - MALAISE [None]
  - MULTI-ORGAN FAILURE [None]
  - PANCYTOPENIA [None]
  - PERICARDIAL EFFUSION [None]
  - PSEUDO LYMPHOMA [None]
  - PYREXIA [None]
  - RESPIRATORY ARREST [None]
